FAERS Safety Report 7527778-2 (Version None)
Quarter: 2011Q2

REPORT INFORMATION
  Report Type: 
  Country: None (occurrence: None)
  Receive Date: 20110512
  Receipt Date: 20110207
  Transmission Date: 20111010
  Serious: No
  Sender: FDA-Public Use
  Company Number: 1000018709

PATIENT
  Age: 50 Year
  Sex: Female

DRUGS (5)
  1. BACLOFEN [Concomitant]
  2. VITAMIN D (VITAMIN D) (VITAMIN D) [Concomitant]
  3. SAVELLA [Suspect]
     Indication: FIBROMYALGIA
     Dosage: SEE IMAGE
     Route: 048
     Dates: start: 20110127, end: 20110127
  4. MORPHINE [Concomitant]
  5. CYMBALTA (DULOXETINE HYDROCHLORIDE) (DULOXETINE HYDROCHLORIDE) [Concomitant]

REACTIONS (3)
  - HYPOAESTHESIA [None]
  - THERAPEUTIC RESPONSE UNEXPECTED [None]
  - BACK PAIN [None]
